FAERS Safety Report 10878786 (Version 1)
Quarter: 2015Q1

REPORT INFORMATION
  Report Type: Report from Study
  Country: US (occurrence: US)
  Receive Date: 20150302
  Receipt Date: 20150302
  Transmission Date: 20150721
  Serious: Yes (Hospitalization, Other)
  Sender: FDA-Public Use
  Company Number: US-SA-2014SA134076

PATIENT
  Age: 30 Year
  Sex: Female

DRUGS (1)
  1. AUBAGIO [Suspect]
     Active Substance: TERIFLUNOMIDE
     Indication: MULTIPLE SCLEROSIS
     Route: 048
     Dates: start: 20140905

REACTIONS (8)
  - Nausea [Unknown]
  - Unevaluable event [Unknown]
  - Rehabilitation therapy [Unknown]
  - Abasia [Unknown]
  - Genital herpes [Unknown]
  - Speech disorder [Unknown]
  - Impaired driving ability [Unknown]
  - Vomiting [Unknown]

NARRATIVE: CASE EVENT DATE: 201409
